FAERS Safety Report 4381901-X (Version None)
Quarter: 2004Q2

REPORT INFORMATION
  Report Type: 
  Country: None (occurrence: None)
  Receive Date: 20040615
  Receipt Date: 20040531
  Transmission Date: 20050107
  Serious: Yes (Other)
  Sender: FDA-Public Use
  Company Number: 2004AP02732

PATIENT
  Age: 77 Year
  Sex: Male

DRUGS (5)
  1. CASODEX [Suspect]
     Indication: PROSTATE CANCER
     Dosage: 80 MG DAILY PO
     Route: 048
     Dates: start: 20031119, end: 20040506
  2. ZOLADEX [Suspect]
     Indication: PROSTATE CANCER
     Dosage: 3.6 MG Q4WK SQ
     Dates: start: 20031119, end: 20040409
  3. LUVOX [Suspect]
     Indication: HOT FLUSH
     Dates: start: 20040326, end: 20040506
  4. NO MATCH [Concomitant]
  5. ANTI-DEPRESSANT [Concomitant]

REACTIONS (6)
  - DRUG INTERACTION [None]
  - GENERALISED ERYTHEMA [None]
  - HOT FLUSH [None]
  - INFECTION [None]
  - PSORIASIS [None]
  - RASH PUSTULAR [None]
